FAERS Safety Report 9381909 (Version 4)
Quarter: 2013Q3

REPORT INFORMATION
  Report Type: Report from Study
  Country: US (occurrence: US)
  Receive Date: 20130703
  Receipt Date: 20130916
  Transmission Date: 20140515
  Serious: Yes (Hospitalization)
  Sender: FDA-Public Use
  Company Number: US-ACTELION-A-NJ2013-85450

PATIENT
  Age: 74 Year
  Sex: Female

DRUGS (17)
  1. VENTAVIS [Suspect]
     Indication: PULMONARY HYPERTENSION
     Dosage: UNK
     Route: 055
     Dates: start: 20120318
  2. LETAIRIS [Suspect]
     Dosage: 5 MG, QD
     Dates: start: 20111008
  3. REVATIO [Concomitant]
  4. SILDENAFIL [Concomitant]
  5. ASPIRIN [Concomitant]
  6. MAGNESIUM [Concomitant]
  7. NASONEX [Concomitant]
  8. ATENOLOL [Concomitant]
  9. SIMVASTATIN [Concomitant]
  10. PREVACID [Concomitant]
  11. CELEXA [Concomitant]
  12. KLONOPIN [Concomitant]
  13. EVISTA [Concomitant]
  14. PREDNISONE [Concomitant]
  15. SYNTHROID [Concomitant]
  16. OS-CAL D [Concomitant]
  17. NORCO [Concomitant]

REACTIONS (6)
  - Foot operation [Recovered/Resolved]
  - Bunion operation [Unknown]
  - Cardiac failure congestive [Recovered/Resolved]
  - Cough [Recovered/Resolved]
  - Dyspnoea [Recovered/Resolved]
  - Treatment noncompliance [Unknown]
